FAERS Safety Report 14958523 (Version 1)
Quarter: 2018Q2

REPORT INFORMATION
  Report Type: Spontaneous
  Country: FR (occurrence: FR)
  Receive Date: 20180531
  Receipt Date: 20180531
  Transmission Date: 20180711
  Serious: Yes (Hospitalization)
  Sender: FDA-Public Use
  Company Number: FR-AUROBINDO-AUR-APL-2018-028659

PATIENT
  Age: 18 Year
  Sex: Female

DRUGS (1)
  1. PARACETAMOL [Suspect]
     Active Substance: ACETAMINOPHEN
     Indication: TOXICITY TO VARIOUS AGENTS
     Dosage: ENTRE 12 ET 16 GRAMMES
     Route: 048
     Dates: start: 20180514

REACTIONS (3)
  - Analgesic drug level increased [Recovered/Resolved]
  - Nausea [Recovered/Resolved]
  - Intentional overdose [Recovered/Resolved]

NARRATIVE: CASE EVENT DATE: 20180514
